FAERS Safety Report 8139430-3 (Version None)
Quarter: 2012Q1

REPORT INFORMATION
  Report Type: 
  Country: None (occurrence: None)
  Receive Date: 20120215
  Receipt Date: 20120209
  Transmission Date: 20120608
  Serious: Yes (Hospitalization, Other)
  Sender: FDA-Public Use
  Company Number: US-ROCHE-788554

PATIENT
  Sex: Female

DRUGS (1)
  1. ACCUTANE [Suspect]
     Indication: PRODUCT USED FOR UNKNOWN INDICATION
     Route: 065
     Dates: start: 19830101, end: 19840101

REACTIONS (5)
  - CROHN'S DISEASE [None]
  - ABDOMINAL ABSCESS [None]
  - ENTEROCUTANEOUS FISTULA [None]
  - DEPRESSION [None]
  - INFLAMMATORY BOWEL DISEASE [None]
